FAERS Safety Report 20889731 (Version 1)
Quarter: 2022Q2

REPORT INFORMATION
  Report Type: Spontaneous
  Country: US (occurrence: US)
  Receive Date: 20220530
  Receipt Date: 20220530
  Transmission Date: 20220721
  Serious: No
  Sender: FDA-Public Use
  Company Number: US-GSKCCFUS-Case-01385227_AE-79969

PATIENT
  Sex: Female

DRUGS (1)
  1. VOLTAREN ARTHRITIS PAIN [Suspect]
     Active Substance: DICLOFENAC SODIUM
     Indication: Product used for unknown indication
     Dosage: UNK
     Dates: start: 20220518, end: 20220518

REACTIONS (3)
  - Rash [Unknown]
  - Pyrexia [Unknown]
  - Joint swelling [Unknown]

NARRATIVE: CASE EVENT DATE: 20220518
